FAERS Safety Report 4856572-6 (Version None)
Quarter: 2005Q4

REPORT INFORMATION
  Report Type: 
  Country: None (occurrence: None)
  Receive Date: 20051219
  Receipt Date: 20050105
  Transmission Date: 20060501
  Serious: No
  Sender: FDA-Public Use
  Company Number: US-GLAXOSMITHKLINE-A0539403A

PATIENT
  Age: 42 Year
  Sex: Female

DRUGS (6)
  1. NICODERM CQ [Suspect]
  2. VALIUM [Concomitant]
  3. LITHIUM [Concomitant]
  4. REMERON [Concomitant]
  5. WELLBUTRIN [Concomitant]
  6. ZYPREXA [Concomitant]

REACTIONS (1)
  - APPLICATION SITE DERMATITIS [None]
